FAERS Safety Report 9281432 (Version 2)
Quarter: 2013Q2

REPORT INFORMATION
  Report Type: Spontaneous
  Country: US (occurrence: US)
  Receive Date: 20130509
  Receipt Date: 20130529
  Transmission Date: 20140414
  Serious: Yes (Hospitalization, Other)
  Sender: FDA-Public Use
  Company Number: US-INCYTE CORPORATION-2013IN000918

PATIENT
  Age: 74 Year
  Sex: 0
  Weight: 66.67 kg

DRUGS (6)
  1. JAKAFI [Suspect]
     Indication: MYELOFIBROSIS
     Dosage: 20 MG, BID
     Route: 048
     Dates: start: 20130413, end: 20130501
  2. JAKAFI [Suspect]
     Dosage: NOT SPECIFIED
     Dates: start: 20130517
  3. ASPIRIN [Suspect]
     Dosage: 81 MG, QD
     Route: 048
  4. FUROSEMIDE [Concomitant]
     Dosage: 20 MG, QD
     Route: 048
  5. LISINOPRIL [Concomitant]
     Dosage: 10 MG, QD
     Route: 048
  6. MULTIVITAMIN [Concomitant]
     Dosage: 1 TABLET DAILY
     Route: 048

REACTIONS (1)
  - Post procedural haematoma [Recovering/Resolving]
